FAERS Safety Report 4445558-1 (Version None)
Quarter: 2004Q3

REPORT INFORMATION
  Report Type: 
  Country: None (occurrence: None)
  Receive Date: 20040902
  Receipt Date: 20040822
  Transmission Date: 20050211
  Serious: Yes (Life-Threatening, Other)
  Sender: FDA-Public Use
  Company Number: 087-20785-04080481

PATIENT

DRUGS (1)
  1. THALOMID [Suspect]
     Indication: MULTIPLE MYELOMA
     Dosage: 200-400 MG/DAY, OD, ORAL
     Route: 048
     Dates: start: 20010301, end: 20020201

REACTIONS (1)
  - LEUKAEMIA PLASMACYTIC [None]
